FAERS Safety Report 10068049 (Version 1)
Quarter: 2014Q2

REPORT INFORMATION
  Report Type: Report from Study
  Country: US (occurrence: US)
  Receive Date: 20140409
  Receipt Date: 20140409
  Transmission Date: 20141212
  Serious: Yes (Hospitalization, Other)
  Sender: FDA-Public Use
  Company Number: PHEH2014US006858

PATIENT
  Age: 94 Year
  Sex: Female

DRUGS (1)
  1. EXELON PATCH [Suspect]
     Dosage: 13.3 MG, ONCE DAILY
     Route: 062

REACTIONS (8)
  - Cervical vertebral fracture [Recovering/Resolving]
  - Neck pain [Recovering/Resolving]
  - Fall [Recovering/Resolving]
  - Laceration [Recovering/Resolving]
  - Ear pain [Recovered/Resolved]
  - Nightmare [Recovered/Resolved]
  - Face injury [Recovering/Resolving]
  - Confusional state [Recovered/Resolved]
